FAERS Safety Report 21855824 (Version 1)
Quarter: 2023Q1

REPORT INFORMATION
  Report Type: Report from Study
  Country: TW (occurrence: TW)
  Receive Date: 20230112
  Receipt Date: 20230112
  Transmission Date: 20230418
  Serious: Yes (Hospitalization)
  Sender: FDA-Public Use
  Company Number: TW-EXELIXIS-XL18422058256

PATIENT
  Age: 68 Year
  Sex: Male

DRUGS (8)
  1. CABOZANTINIB [Suspect]
     Active Substance: CABOZANTINIB
     Indication: Pancreatic neuroendocrine tumour
     Dosage: 60 MF, QD
     Route: 048
     Dates: start: 20221121, end: 20221122
  2. LANREOTIDE ACETATE [Suspect]
     Active Substance: LANREOTIDE ACETATE
     Indication: Pancreatic neuroendocrine tumour
     Dosage: 120 MG, PER CYCLE
     Route: 058
     Dates: start: 20221121, end: 20221121
  3. URSOLIC [Concomitant]
  4. BAO-GAN [Concomitant]
  5. DEXILANT [Concomitant]
     Active Substance: DEXLANSOPRAZOLE
  6. ANXIEDIN [Concomitant]
  7. PLASBUMIN-25 LOW ALBUMIN [Concomitant]
  8. VEMLIDY [Concomitant]
     Active Substance: TENOFOVIR ALAFENAMIDE FUMARATE

REACTIONS (2)
  - Oesophageal varices haemorrhage [Recovered/Resolved]
  - Lower gastrointestinal haemorrhage [Recovered/Resolved]

NARRATIVE: CASE EVENT DATE: 20221123
